FAERS Safety Report 24707706 (Version 1)
Quarter: 2024Q4

REPORT INFORMATION
  Report Type: Spontaneous
  Country: ES (occurrence: ES)
  Receive Date: 20241206
  Receipt Date: 20241206
  Transmission Date: 20250115
  Serious: Yes (Other)
  Sender: CSL BEHRING
  Company Number: ES-BEH-2024186544

PATIENT
  Age: 20 Year
  Sex: Female

DRUGS (3)
  1. HAEMATE P [Suspect]
     Active Substance: ANTIHEMOPHILIC FACTOR HUMAN
     Indication: Von Willebrand^s disease
     Dosage: EVERY 2-3 HRS
     Dates: start: 201904
  2. HAEMATE P [Suspect]
     Active Substance: ANTIHEMOPHILIC FACTOR HUMAN
     Dosage: 80 IU/KG, BID
     Dates: start: 201904, end: 201909
  3. HAEMATE P [Suspect]
     Active Substance: ANTIHEMOPHILIC FACTOR HUMAN
     Dosage: 800 IU/KG, TID

REACTIONS (5)
  - Shock haemorrhagic [Unknown]
  - Shock haemorrhagic [Unknown]
  - Anaemia [Unknown]
  - Epistaxis [Unknown]
  - Epistaxis [Unknown]

NARRATIVE: CASE EVENT DATE: 20190401
